FAERS Safety Report 4325973-7 (Version None)
Quarter: 2004Q1

REPORT INFORMATION
  Report Type: 
  Country: None (occurrence: None)
  Receive Date: 20040329
  Receipt Date: 20031017
  Transmission Date: 20041129
  Serious: Yes (Life-Threatening, Hospitalization, Disabling, Other)
  Sender: FDA-Public Use
  Company Number: BE-GLAXOSMITHKLINE-B0312414A

PATIENT
  Age: 46 Year
  Sex: Male

DRUGS (8)
  1. ZYBAN [Suspect]
     Indication: SMOKING CESSATION THERAPY
     Dosage: 150MG SEE DOSAGE TEXT
     Route: 048
  2. ASCORBIC ACID [Concomitant]
     Indication: ILL-DEFINED DISORDER
  3. ASPIRIN JUNIOR [Concomitant]
     Indication: PROPHYLAXIS
  4. MULTIVITAMIN WITH ZINC [Concomitant]
     Indication: ILL-DEFINED DISORDER
  5. SELENIUM TRACE METAL ADDITIVE [Concomitant]
     Indication: ILL-DEFINED DISORDER
  6. GLUCOSAMINE SULPHATE [Concomitant]
     Indication: ILL-DEFINED DISORDER
  7. VENTOLIN [Concomitant]
     Route: 055
  8. LYSOMUCIL [Concomitant]
     Route: 048

REACTIONS (12)
  - ARRHYTHMIA [None]
  - BRADYCARDIA [None]
  - CARDIAC ENZYMES INCREASED [None]
  - EPILEPSY [None]
  - INFLUENZA LIKE ILLNESS [None]
  - LOSS OF CONSCIOUSNESS [None]
  - MALAISE [None]
  - SUDDEN DEATH [None]
  - SYNCOPE [None]
  - VENTRICULAR EXTRASYSTOLES [None]
  - VENTRICULAR FIBRILLATION [None]
  - WHITE BLOOD CELL COUNT INCREASED [None]
